FAERS Safety Report 6198382-6 (Version None)
Quarter: 2009Q2

REPORT INFORMATION
  Report Type: 
  Country: None (occurrence: None)
  Receive Date: 20090518
  Receipt Date: 20090224
  Transmission Date: 20091009
  Serious: No
  Sender: FDA-Public Use
  Company Number: WAES 0902USA04215

PATIENT
  Age: 42 Year
  Sex: Female

DRUGS (3)
  1. ISENTRESS [Suspect]
     Indication: HIV INFECTION
     Dosage: /PO
     Route: 048
     Dates: start: 20080701
  2. RETROVIR [Concomitant]
  3. SUSTIVA [Concomitant]

REACTIONS (2)
  - TREATMENT FAILURE [None]
  - VIRAL LOAD DECREASED [None]
